FAERS Safety Report 8365913-7 (Version None)
Quarter: 2012Q2

REPORT INFORMATION
  Report Type: 
  Country: None (occurrence: None)
  Receive Date: 20120515
  Receipt Date: 20120503
  Transmission Date: 20120825
  Serious: Yes (Hospitalization, Other)
  Sender: FDA-Public Use
  Company Number: 2012MA005689

PATIENT
  Age: 29 Year
  Sex: Male

DRUGS (2)
  1. OXAZEPAM [Suspect]
     Dosage: 5 GM; PO
     Route: 048
  2. VENLAFAXINE HCL [Suspect]
     Dosage: 22.5 GM; PO
     Route: 048

REACTIONS (14)
  - DRUG SCREEN POSITIVE [None]
  - DEPRESSED LEVEL OF CONSCIOUSNESS [None]
  - SINUS TACHYCARDIA [None]
  - BLOOD PRESSURE INCREASED [None]
  - EYE MOVEMENT DISORDER [None]
  - HYPERTHERMIA [None]
  - MYOCLONUS [None]
  - AGITATION [None]
  - HYPERTONIA [None]
  - HYPOGLYCAEMIA [None]
  - TREMOR [None]
  - HYPERREFLEXIA [None]
  - BLOOD CREATINE PHOSPHOKINASE INCREASED [None]
  - PNEUMONIA ASPIRATION [None]
